FAERS Safety Report 8543535-2 (Version None)
Quarter: 2012Q3

REPORT INFORMATION
  Report Type: 
  Country: None (occurrence: None)
  Receive Date: 20120727
  Receipt Date: 20120725
  Transmission Date: 20120928
  Serious: Yes (Hospitalization, Other)
  Sender: FDA-Public Use
  Company Number: PHFR2012GB002777

PATIENT
  Sex: Male

DRUGS (13)
  1. DULOXETIME HYDROCHLORIDE [Concomitant]
  2. LANSOPRAZOLE [Concomitant]
     Dosage: 30 MG, ONCE IN A DAY
  3. GABAPENTIN [Concomitant]
  4. METFORMIN HYDROCHLORIDE [Concomitant]
  5. CLOZARIL [Suspect]
     Indication: SCHIZOPHRENIA
     Dosage: 850 MG, DAILY
     Route: 048
     Dates: start: 20070124
  6. TADALAFIL [Concomitant]
  7. DIAZEPAM [Concomitant]
  8. SENNA-MINT WAF [Concomitant]
  9. SIMVASTATIN [Concomitant]
  10. SODIUM ALGINATE [Concomitant]
  11. HALOPERIDOL [Concomitant]
     Dosage: 1 MG, DAILY
     Route: 048
  12. CLOPIDOGREL [Concomitant]
  13. LACTULOSE [Concomitant]

REACTIONS (3)
  - CARDIOVASCULAR DISORDER [None]
  - CHEST PAIN [None]
  - CEREBROVASCULAR ACCIDENT [None]
